FAERS Safety Report 5193492-4 (Version None)
Quarter: 2006Q4

REPORT INFORMATION
  Report Type: 
  Country: None (occurrence: None)
  Receive Date: 20061228
  Receipt Date: 20060605
  Transmission Date: 20070319
  Serious: No
  Sender: FDA-Public Use
  Company Number: US-GLAXOSMITHKLINE-A0607913A

PATIENT
  Age: 71 Year
  Sex: Male

DRUGS (13)
  1. FLONASE [Suspect]
     Dosage: 50MCG PER DAY
     Route: 045
     Dates: start: 20060502
  2. ADVAIR DISKUS 100/50 [Concomitant]
  3. ALLOPURINOL SODIUM [Concomitant]
  4. BENICAR [Concomitant]
  5. CALAN [Concomitant]
  6. LASIX [Concomitant]
  7. LODRANE [Concomitant]
  8. THEOPHYLLINE [Concomitant]
  9. COLCHICINE [Concomitant]
  10. LODINE XL [Concomitant]
  11. ZANTAC [Concomitant]
  12. AVELOX [Concomitant]
  13. ALBUTEROL [Concomitant]

REACTIONS (1)
  - DRUG INEFFECTIVE [None]
